FAERS Safety Report 22385945 (Version 1)
Quarter: 2023Q2

REPORT INFORMATION
  Report Type: Spontaneous
  Country: PT (occurrence: PT)
  Receive Date: 20230530
  Receipt Date: 20230530
  Transmission Date: 20230721
  Serious: Yes (Death, Hospitalization, Other)
  Sender: FDA-Public Use
  Company Number: PT-GLAXOSMITHKLINE-PT2023GSK074372

PATIENT

DRUGS (2)
  1. BUPROPION HYDROCHLORIDE XL [Suspect]
     Active Substance: BUPROPION HYDROCHLORIDE
     Indication: Major depression
     Dosage: 300 MG, 1D
  2. BUPROPION HYDROCHLORIDE XL [Suspect]
     Active Substance: BUPROPION HYDROCHLORIDE
     Dosage: 2100 MG

REACTIONS (15)
  - Intentional product misuse [Fatal]
  - Acute myocardial infarction [Unknown]
  - Drug dependence [Unknown]
  - Overdose [Unknown]
  - Psychomotor hyperactivity [Unknown]
  - Dyspnoea [Unknown]
  - Euphoric mood [Unknown]
  - Substance use [Unknown]
  - Agitation [Unknown]
  - Impulsive behaviour [Unknown]
  - Tachycardia [Unknown]
  - Anxiety [Unknown]
  - Irritability [Unknown]
  - Drug abuse [Fatal]
  - Incorrect route of product administration [Unknown]
